FAERS Safety Report 6817569-X (Version None)
Quarter: 2010Q3

REPORT INFORMATION
  Report Type: 
  Country: None (occurrence: None)
  Receive Date: 20100706
  Receipt Date: 20100702
  Transmission Date: 20110219
  Serious: Yes (Life-Threatening)
  Sender: FDA-Public Use
  Company Number: GB-ELI_LILLY_AND_COMPANY-GB201007000431

PATIENT
  Age: 66 Year
  Weight: 85.5 kg

DRUGS (5)
  1. BYETTA [Suspect]
     Dosage: 10 MG, UNKNOWN
     Route: 058
     Dates: start: 20090101, end: 20100501
  2. ATORVASTATIN [Concomitant]
  3. METFORMIN HCL [Concomitant]
  4. LEVEMIR [Concomitant]
  5. HUMALOG [Concomitant]

REACTIONS (4)
  - GLOMERULONEPHRITIS [None]
  - OFF LABEL USE [None]
  - RASH [None]
  - RENAL FAILURE ACUTE [None]
